FAERS Safety Report 14361721 (Version 1)
Quarter: 2018Q1

REPORT INFORMATION
  Report Type: Report from Study
  Country: US (occurrence: US)
  Receive Date: 20180108
  Receipt Date: 20180108
  Transmission Date: 20180509
  Serious: Yes (Other)
  Sender: FDA-Public Use
  Company Number: US-ROCHE-2041136

PATIENT
  Age: 31 Year
  Sex: Female
  Weight: 87.62 kg

DRUGS (9)
  1. DIAZEPAM. [Suspect]
     Active Substance: DIAZEPAM
     Indication: PRODUCT USED FOR UNKNOWN INDICATION
     Route: 065
  2. NUTROPIN AQ [Suspect]
     Active Substance: SOMATROPIN
     Indication: GROWTH HORMONE DEFICIENCY
     Route: 058
  3. ACETAMINOPHEN. [Concomitant]
     Active Substance: ACETAMINOPHEN
     Route: 048
  4. ZOFRAN [Concomitant]
     Active Substance: ONDANSETRON HYDROCHLORIDE
     Route: 048
  5. CEFAZOLINE [Concomitant]
     Active Substance: CEFAZOLIN SODIUM
  6. LIDOCAINE. [Concomitant]
     Active Substance: LIDOCAINE
     Dosage: BUFFERED
     Route: 065
  7. HYDROCORTISONE. [Concomitant]
     Active Substance: HYDROCORTISONE
     Route: 065
  8. LEVOTHYROXINE. [Concomitant]
     Active Substance: LEVOTHYROXINE
     Route: 065
  9. CABERGOLINE. [Concomitant]
     Active Substance: CABERGOLINE

REACTIONS (5)
  - Tunnel vision [Unknown]
  - Seizure [Unknown]
  - Thyroxine free increased [Unknown]
  - Blood prolactin increased [Unknown]
  - Blood thyroid stimulating hormone decreased [Unknown]

NARRATIVE: CASE EVENT DATE: 20150126
